FAERS Safety Report 15485621 (Version 1)
Quarter: 2018Q4

REPORT INFORMATION
  Report Type: Spontaneous
  Country: FR (occurrence: FR)
  Receive Date: 20181010
  Receipt Date: 20181010
  Transmission Date: 20190205
  Serious: Yes (Hospitalization)
  Sender: FDA-Public Use
  Company Number: PHHY2018FR120540

PATIENT
  Age: 80 Year
  Sex: Male

DRUGS (6)
  1. TAHOR [Concomitant]
     Active Substance: ATORVASTATIN CALCIUM
     Indication: DYSLIPIDAEMIA
     Dosage: 100 MG, QD (1-0-0)
     Route: 048
     Dates: start: 201302
  2. VANCOMYCIN [Suspect]
     Active Substance: VANCOMYCIN
     Indication: LUNG DISORDER
     Dosage: 375 ML, QD (1 FL-1-1)
     Route: 042
     Dates: start: 20180213, end: 20180228
  3. FORTUM [Interacting]
     Active Substance: CEFTAZIDIME
     Indication: LUNG DISORDER
     Dosage: 3 G, QD (1 FL-1-1)
     Route: 042
     Dates: start: 20180213, end: 20180228
  4. ALLOPURINOL. [Concomitant]
     Active Substance: ALLOPURINOL
     Indication: HYPERURICAEMIA
     Dosage: 100 MG, QD (1-0-0)
     Route: 048
     Dates: start: 201302
  5. KARDEGIC [Suspect]
     Active Substance: ASPIRIN DL-LYSINE
     Indication: CARDIAC VALVE PROSTHESIS USER
     Dosage: 75 MG, QD (1-0-0)
     Route: 048
     Dates: start: 2012
  6. COUMADINE [Suspect]
     Active Substance: WARFARIN SODIUM
     Indication: CARDIAC VALVE PROSTHESIS USER
     Dosage: 6 MG, QD (0-0-3)
     Route: 048
     Dates: start: 201701

REACTIONS (2)
  - Haemorrhagic anaemia [Recovered/Resolved]
  - Rectal haemorrhage [Recovered/Resolved]

NARRATIVE: CASE EVENT DATE: 20180217
